FAERS Safety Report 8282071-8 (Version None)
Quarter: 2012Q2

REPORT INFORMATION
  Report Type: 
  Country: None (occurrence: None)
  Receive Date: 20120410
  Receipt Date: 20120405
  Transmission Date: 20120825
  Serious: Yes (Hospitalization)
  Sender: FDA-Public Use
  Company Number: 2011SP012082

PATIENT
  Age: 30 Year
  Sex: Female
  Weight: 63.5036 kg

DRUGS (6)
  1. LYRICA [Concomitant]
  2. PERCOCET [Concomitant]
  3. NUVARING [Suspect]
     Indication: CONTRACEPTION
     Dates: start: 20080701, end: 20100316
  4. PROVENTIL [Concomitant]
  5. MIDRIN [Concomitant]
  6. TRIAZOLAM [Concomitant]

REACTIONS (33)
  - FACIAL PAIN [None]
  - CEREBRAL HAEMORRHAGE [None]
  - DEEP VEIN THROMBOSIS [None]
  - COMMINUTED FRACTURE [None]
  - LACERATION [None]
  - PAIN THRESHOLD DECREASED [None]
  - LARYNGITIS [None]
  - HAEMANGIOMA [None]
  - PANIC ATTACK [None]
  - INTERNATIONAL NORMALISED RATIO DECREASED [None]
  - DYSPAREUNIA [None]
  - ALOPECIA [None]
  - PNEUMONIA [None]
  - CERVIX CARCINOMA [None]
  - UPPER RESPIRATORY TRACT INFECTION [None]
  - DYSURIA [None]
  - DRUG INTOLERANCE [None]
  - FACE INJURY [None]
  - POST-TRAUMATIC STRESS DISORDER [None]
  - AFFECTIVE DISORDER [None]
  - FALL [None]
  - FACIAL BONES FRACTURE [None]
  - SINUS DISORDER [None]
  - PELVIC PAIN [None]
  - ROAD TRAFFIC ACCIDENT [None]
  - HEAD INJURY [None]
  - SINUSITIS [None]
  - BRONCHITIS [None]
  - POLLAKIURIA [None]
  - DRUG ABUSE [None]
  - FOLLICULITIS [None]
  - ARTHRALGIA [None]
  - BIPOLAR DISORDER [None]
